FAERS Safety Report 10208131 (Version 1)
Quarter: 2014Q2

REPORT INFORMATION
  Report Type: Spontaneous
  Country: US (occurrence: US)
  Receive Date: 20140530
  Receipt Date: 20140530
  Transmission Date: 20141212
  Serious: No
  Sender: FDA-Public Use
  Company Number: US-PURDUE-USA-2013-0104352

PATIENT
  Sex: Male

DRUGS (2)
  1. MORPHINE SULFATE EXTENDED-RELEASE TABLETS (RHODES 74-862) [Suspect]
     Indication: PRODUCT USED FOR UNKNOWN INDICATION
     Dosage: 90 MG, DAILY
  2. MORPHINE SULFATE EXTENDED-RELEASE TABLETS (RHODES 74-862) [Suspect]
     Dosage: 30 MG, DAILY

REACTIONS (4)
  - Sexual dysfunction [Unknown]
  - Weight increased [Unknown]
  - Drug withdrawal syndrome [Unknown]
  - Wrong technique in drug usage process [Unknown]
